FAERS Safety Report 15526238 (Version 1)
Quarter: 2018Q4

REPORT INFORMATION
  Report Type: Report from Study
  Country: US (occurrence: US)
  Receive Date: 20181018
  Receipt Date: 20181018
  Transmission Date: 20190205
  Serious: Yes (Hospitalization)
  Sender: FDA-Public Use
  Company Number: US-CELGENEUS-USA-20181003093

PATIENT
  Age: 88 Year
  Sex: Female
  Weight: 60.6 kg

DRUGS (2)
  1. ROMIDEPSIN. [Suspect]
     Active Substance: ROMIDEPSIN
     Indication: PRODUCT USED FOR UNKNOWN INDICATION
     Dosage: 14 MILLIGRAM/SQ. METER
     Route: 041
     Dates: start: 20180927, end: 20180927
  2. VIDAZA [Suspect]
     Active Substance: AZACITIDINE
     Indication: ANGIOIMMUNOBLASTIC T-CELL LYMPHOMA
     Dosage: 300 MILLIGRAM
     Route: 048
     Dates: start: 20180920, end: 20181003

REACTIONS (3)
  - Haemoglobin decreased [Unknown]
  - Lower gastrointestinal haemorrhage [Not Recovered/Not Resolved]
  - Diarrhoea [Not Recovered/Not Resolved]

NARRATIVE: CASE EVENT DATE: 20180927
